FAERS Safety Report 8989047 (Version 1)
Quarter: 2012Q4

REPORT INFORMATION
  Report Type: Spontaneous
  Country: US (occurrence: None)
  Receive Date: 20121224
  Receipt Date: 20121224
  Transmission Date: 20130627
  Serious: Yes (Hospitalization)
  Sender: FDA-Public Use
  Company Number: None

PATIENT
  Age: 78 Year
  Sex: Female
  Weight: 65.8 kg

DRUGS (1)
  1. RISPERIDONE [Suspect]
     Dosage: 3mg QHS po
     Route: 048
     Dates: start: 20120927, end: 20121015

REACTIONS (3)
  - Dermatitis allergic [None]
  - Erythema [None]
  - Skin lesion [None]
